FAERS Safety Report 10860641 (Version 1)
Quarter: 2015Q1

REPORT INFORMATION
  Report Type: Report from Study
  Country: GR (occurrence: GR)
  Receive Date: 20150224
  Receipt Date: 20150224
  Transmission Date: 20150721
  Serious: Yes (Death)
  Sender: FDA-Public Use
  Company Number: GR-ROCHE-1542913

PATIENT

DRUGS (5)
  1. CAPECITABINE. [Suspect]
     Active Substance: CAPECITABINE
     Dosage: DURING RADIOTHERAPY: 1650 MG/M2/D, PO DIVIDED INTO 2 DAILY DOSES FOR 5 CONSECUTIVE DAYS, MONDAY TO F
     Route: 048
  2. CISPLATIN. [Suspect]
     Active Substance: CISPLATIN
     Indication: ADENOCARCINOMA GASTRIC
     Dosage: PRERADIATION CHEMOTHERAPY: 60 MG/M2/D DOSE AS A 2-HOUR IV INFUSION AFTER ADEQUATE HYDRATION AND ANTI
     Route: 042
  3. CAPECITABINE. [Suspect]
     Active Substance: CAPECITABINE
     Indication: ADENOCARCINOMA GASTRIC
     Dosage: PRERADIATION CHEMOTHERAPY: 1800MG/M2/D, DIVIDED INTO 2 DAILY DOSES, ADMINISTERED ORALLY FROM DAYS 1
     Route: 048
  4. DOCETAXEL. [Suspect]
     Active Substance: DOCETAXEL
     Indication: ADENOCARCINOMA GASTRIC
     Dosage: PRERADIATION CHEMOTHERAPY: 60MG/M2/D AS A 60-MINUTE INTRAVENOUS (IV) INFUSION ON DAY 1
     Route: 042
  5. CAPECITABINE. [Suspect]
     Active Substance: CAPECITABINE
     Dosage: POSTRADIATION CHEMOTHERAPY: 1800MG/M2/D, DIVIDED INTO 2 DAILY DOSES, ADMINISTERED ORALLY FROM DAYS 1
     Route: 048

REACTIONS (1)
  - Sepsis [Fatal]
